FAERS Safety Report 7693291-5 (Version None)
Quarter: 2011Q3

REPORT INFORMATION
  Report Type: 
  Country: None (occurrence: None)
  Receive Date: 20110819
  Receipt Date: 20110808
  Transmission Date: 20111222
  Serious: Yes (Hospitalization)
  Sender: FDA-Public Use
  Company Number: PHHY2011DE51067

PATIENT
  Age: 69 Year
  Sex: Female
  Weight: 88 kg

DRUGS (5)
  1. OMEPRAZOLE [Concomitant]
     Dosage: 40 MG, PER DAY
     Route: 048
     Dates: start: 20110607
  2. PANTOPRAZOLE [Concomitant]
     Dosage: 20 MG, PER DAY
     Route: 048
     Dates: start: 20110103, end: 20110607
  3. ZOMETA [Concomitant]
     Dosage: UNK
     Route: 042
     Dates: start: 20100801
  4. FERROUS SULFATE TAB [Concomitant]
     Dosage: 100 MG, BID
     Route: 048
     Dates: start: 20110103
  5. FEMARA [Suspect]
     Indication: BREAST CANCER
     Dosage: 2.5 MG, UNK
     Route: 048
     Dates: start: 20100605, end: 20100607

REACTIONS (3)
  - ORTHOPOX VIRUS INFECTION [None]
  - SKIN DEPIGMENTATION [None]
  - ERYTHEMA [None]
